FAERS Safety Report 14230507 (Version 1)
Quarter: 2017Q4

REPORT INFORMATION
  Report Type: Spontaneous
  Country: JO (occurrence: JO)
  Receive Date: 20171128
  Receipt Date: 20171128
  Transmission Date: 20180321
  Serious: Yes (Other)
  Sender: FDA-Public Use
  Company Number: JO-FERRINGPH-2017FE05647

PATIENT
  Age: 31 Year
  Sex: Female
  Weight: 68 kg

DRUGS (3)
  1. TRIPTORELIN ACETATE [Suspect]
     Active Substance: TRIPTORELIN ACETATE
     Indication: IN VITRO FERTILISATION
     Dosage: 0.1 DF, DAILY
     Route: 058
     Dates: start: 20171028, end: 20171103
  2. MENOGON [Suspect]
     Active Substance: MENOTROPINS
     Indication: IN VITRO FERTILISATION
     Dosage: 300 IU, DAILY
     Route: 030
     Dates: start: 20171028, end: 20171103
  3. FOLIC ACID. [Concomitant]
     Active Substance: FOLIC ACID
     Indication: IN VITRO FERTILISATION
     Dosage: 400 MG, DAILY
     Route: 048
     Dates: start: 20170901

REACTIONS (9)
  - Chills [Unknown]
  - Injection site pain [Unknown]
  - Arthralgia [Unknown]
  - Myalgia [Unknown]
  - Cough [Unknown]
  - Feeling hot [Unknown]
  - Pyrexia [Unknown]
  - Asthenia [Unknown]
  - Ventricular tachycardia [Unknown]

NARRATIVE: CASE EVENT DATE: 201710
